FAERS Safety Report 9245256 (Version 1)
Quarter: 2013Q1

REPORT INFORMATION
  Report Type: Spontaneous
  Country: US (occurrence: None)
  Receive Date: 20121130
  Receipt Date: 20121130
  Transmission Date: 20140127
  Serious: Yes (Other)
  Sender: FDA-Public Use
  Company Number: US201209007564

PATIENT
  Age: 77 Year
  Sex: Female

DRUGS (3)
  1. BYETTA [Suspect]
     Route: 058
  2. VICTOZA (LIRAGLUTIDE) [Concomitant]
  3. COUMADIN (WARFARIN SODIUM) [Concomitant]

REACTIONS (2)
  - International normalised ratio increased [None]
  - Mouth haemorrhage [None]
